FAERS Safety Report 23521729 (Version 1)
Quarter: 2024Q1

REPORT INFORMATION
  Report Type: 
  Country: None (occurrence: None)
  Receive Date: 20240214
  Receipt Date: 20240214
  Transmission Date: 20240410
  Serious: No
  Sender: FDA-Public Use
  Company Number: CA-002147023-PHHY2013CA039343

PATIENT

DRUGS (7)
  1. XOLAIR [Suspect]
     Active Substance: OMALIZUMAB
     Dates: start: 20130418
  2. XOLAIR [Suspect]
     Active Substance: OMALIZUMAB
     Dates: start: 20160927
  3. XOLAIR [Suspect]
     Active Substance: OMALIZUMAB
     Dates: start: 20170118
  4. ZENHALE [Concomitant]
     Active Substance: FORMOTEROL FUMARATE\MOMETASONE FUROATE
     Dosage: 200 MG, (2 PUFFS)
  5. VENTOLIN [Concomitant]
     Active Substance: ALBUTEROL SULFATE
     Dosage: 2 DF, QID  (1-2 PUFFS) PRN
  6. SYMBICORT [Concomitant]
     Active Substance: BUDESONIDE\FORMOTEROL FUMARATE DIHYDRATE
     Dosage: 2 PUFFS DAILY
  7. SPIRIVA [Concomitant]
     Active Substance: TIOTROPIUM BROMIDE MONOHYDRATE
     Dosage: 1 PUFF DAILY

REACTIONS (12)
  - Spinal fracture [None]
  - Forced expiratory volume decreased [None]
  - Spinal compression fracture [None]
  - Musculoskeletal discomfort [None]
  - Accident [None]
  - Fall [None]
  - Ear infection [None]
  - Ear discomfort [None]
  - Hypoacusis [None]
  - Nasopharyngitis [None]
  - Injection site pruritus [None]
  - Dizziness [None]

NARRATIVE: CASE EVENT DATE: 20150727
